FAERS Safety Report 8778972 (Version 1)
Quarter: 2012Q4

REPORT INFORMATION
  Report Type: Report from Study
  Country: DE (occurrence: DE)
  Receive Date: 20120912
  Receipt Date: 20120912
  Transmission Date: 20130627
  Serious: Yes (Death)
  Sender: FDA-Public Use
  Company Number: DE-CELGENEUS-062-21880-12072855

PATIENT

DRUGS (7)
  1. REVLIMID [Suspect]
     Indication: MDS
     Route: 048
  2. REVLIMID [Suspect]
     Indication: ANAEMIA REFRACTORY
  3. REVLIMID [Suspect]
     Indication: HODGKIN^S LYMPHOMA
  4. REVLIMID [Suspect]
     Indication: NON-HODGKIN^S LYMPHOMA
  5. REVLIMID [Suspect]
     Indication: MYELOID LEUKEMIA
  6. REVLIMID [Suspect]
     Indication: LYMPHOCYTIC LEUKEMIA
  7. REVLIMID [Suspect]
     Indication: PROSTATE CANCER

REACTIONS (1)
  - Death [Fatal]
